FAERS Safety Report 7407303-7 (Version None)
Quarter: 2011Q2

REPORT INFORMATION
  Report Type: 
  Country: None (occurrence: None)
  Receive Date: 20110411
  Receipt Date: 20110401
  Transmission Date: 20111010
  Serious: Yes (Hospitalization, Other)
  Sender: FDA-Public Use
  Company Number: PHHY2010FR61041

PATIENT
  Sex: Male

DRUGS (18)
  1. UVEDOSE [Concomitant]
     Dosage: 100000 IU EVERY 3 MONTHS
  2. CERTICAN [Suspect]
     Dosage: 0.8 MG,
     Dates: start: 20090826
  3. EZETIMIBE [Concomitant]
     Dosage: 1 DF QD
  4. MOPRAL [Concomitant]
     Dosage: 20 MG QD
  5. NEORAL [Concomitant]
     Indication: IMMUNOSUPPRESSION
     Dosage: 30 MG DAILY
     Dates: start: 20040101, end: 20091123
  6. LASIX [Concomitant]
     Dosage: 40 MG QD
  7. CERTICAN [Suspect]
     Indication: HEART TRANSPLANT
     Dosage: 1.4 MG, BID
     Dates: start: 20090801
  8. PRAVASTATIN [Concomitant]
     Dosage: 20 MG QD
  9. CACIT [Concomitant]
     Dosage: 500 MG QD
  10. CELLCEPT [Concomitant]
     Indication: IMMUNOSUPPRESSION
     Dosage: 750 MG BID
     Dates: start: 20040101
  11. CORTANCYL [Concomitant]
     Indication: IMMUNOSUPPRESSION
     Dosage: 7.5 MG,
     Dates: start: 20040101
  12. KARDEGIC [Concomitant]
     Dosage: 75 MG, QD
  13. LEVOTHYROX [Concomitant]
     Dosage: 50 MCG DAILY
  14. DIFFU K [Concomitant]
     Dosage: 1 DF TID
  15. ZYLORIC [Concomitant]
     Dosage: 100 MG QD
  16. TAMSULOSIN HYDROCHLORIDE [Concomitant]
     Dosage: 1 DF QD
  17. LERCAN [Concomitant]
     Dosage: 10 MG QD
  18. ART 50 [Concomitant]
     Dosage: 1 DF QD

REACTIONS (9)
  - CARBOHYDRATE ANTIGEN 19-9 INCREASED [None]
  - TRICUSPID VALVE INCOMPETENCE [None]
  - PULMONARY EMBOLISM [None]
  - EJECTION FRACTION DECREASED [None]
  - RIGHT ATRIAL DILATATION [None]
  - ATRIAL THROMBOSIS [None]
  - LEFT VENTRICULAR HYPERTROPHY [None]
  - HEART TRANSPLANT REJECTION [None]
  - INTRACARDIAC THROMBUS [None]
